FAERS Safety Report 5283087-6 (Version None)
Quarter: 2007Q1

REPORT INFORMATION
  Report Type: 
  Country: None (occurrence: None)
  Receive Date: 20070327
  Receipt Date: 20070327
  Transmission Date: 20070707
  Serious: Yes (Other)
  Sender: FDA-Public Use
  Company Number: None

PATIENT
  Age: 34 Year
  Sex: Female
  Weight: 61.2356 kg

DRUGS (1)
  1. LEVAQUIN [Suspect]
     Indication: SINUSITIS
     Dates: start: 20070316, end: 20070326

REACTIONS (11)
  - ARTHRALGIA [None]
  - BACK PAIN [None]
  - FEELING ABNORMAL [None]
  - GAIT DISTURBANCE [None]
  - HEART RATE INCREASED [None]
  - INSOMNIA [None]
  - MUSCLE SPASMS [None]
  - MYALGIA [None]
  - PHARMACEUTICAL PRODUCT COMPLAINT [None]
  - SKIN BURNING SENSATION [None]
  - TREMOR [None]
